FAERS Safety Report 9898082 (Version 2)
Quarter: 2014Q2

REPORT INFORMATION
  Report Type: Spontaneous
  Country: JP (occurrence: JP)
  Receive Date: 20140214
  Receipt Date: 20140418
  Transmission Date: 20141212
  Serious: Yes (Life-Threatening, Hospitalization, Other)
  Sender: FDA-Public Use
  Company Number: JP-JNJFOC-20140206875

PATIENT
  Age: 80 Year
  Sex: Female
  Weight: 49 kg

DRUGS (10)
  1. XARELTO [Suspect]
     Indication: CEREBROVASCULAR ACCIDENT PROPHYLAXIS
     Route: 048
     Dates: start: 20131008, end: 20140212
  2. XARELTO [Suspect]
     Indication: ATRIAL FIBRILLATION
     Route: 048
     Dates: start: 20131008, end: 20140212
  3. AMLODIPINE [Concomitant]
     Route: 048
     Dates: start: 20130702
  4. BLOPRESS [Concomitant]
     Route: 048
     Dates: start: 20130926
  5. BISOPROLOL FUMARATE [Concomitant]
     Route: 048
     Dates: start: 20120528
  6. NEXIUM [Concomitant]
     Route: 048
     Dates: start: 20121016
  7. LOBU [Concomitant]
     Route: 048
  8. LYRICA [Concomitant]
     Route: 048
  9. PREDOHAN [Concomitant]
     Route: 048
  10. RIMATIL [Concomitant]
     Route: 048

REACTIONS (3)
  - Anaemia [Not Recovered/Not Resolved]
  - Embolic stroke [Not Recovered/Not Resolved]
  - Gastrointestinal erosion [Unknown]
